FAERS Safety Report 17345406 (Version 7)
Quarter: 2020Q2

REPORT INFORMATION
  Report Type: Report from Study
  Country: ES (occurrence: ES)
  Receive Date: 20200129
  Receipt Date: 20200515
  Transmission Date: 20200713
  Serious: Yes (Hospitalization)
  Sender: FDA-Public Use
  Company Number: NVSC2020ES018462

PATIENT
  Age: 59 Year
  Sex: Male
  Weight: 62.5 kg

DRUGS (25)
  1. RITUXIMAB. [Suspect]
     Active Substance: RITUXIMAB
     Indication: NON-HODGKIN^S LYMPHOMA
     Dosage: UNK
     Route: 065
     Dates: start: 20191213
  2. FLUDARABINE [Concomitant]
     Active Substance: FLUDARABINE PHOSPHATE
     Dosage: UNK
     Route: 065
     Dates: start: 20200128, end: 20200128
  3. CYCLOPHOSPHAMIDE. [Concomitant]
     Active Substance: CYCLOPHOSPHAMIDE
     Dosage: UNK
     Route: 065
     Dates: start: 20200129, end: 20200129
  4. FRESUBIN [Concomitant]
     Active Substance: AMINO ACIDS\DEXTROSE\ELECTROLYTES NOS\SOYBEAN OIL\VITAMINS
     Indication: GENERAL PHYSICAL CONDITION
     Dosage: UNK
     Route: 065
     Dates: start: 20200116, end: 20200210
  5. LORAZEPAM. [Concomitant]
     Active Substance: LORAZEPAM
     Indication: SLEEP DISORDER
     Dosage: UNK
     Route: 065
     Dates: start: 20191207, end: 20200210
  6. DIAZEPAM. [Concomitant]
     Active Substance: DIAZEPAM
     Indication: PAIN
     Dosage: UNK
     Route: 065
     Dates: start: 20191222, end: 20200210
  7. FLUCONAZOL [Concomitant]
     Active Substance: FLUCONAZOLE
     Indication: ANTIFUNGAL PROPHYLAXIS
     Dosage: UNK
     Route: 065
     Dates: start: 20191230, end: 20200210
  8. LACTULOSA [Concomitant]
     Active Substance: LACTULOSE
     Indication: CONSTIPATION
     Dosage: UNK
     Route: 065
     Dates: start: 20200111, end: 20200119
  9. GEMCITABINE. [Suspect]
     Active Substance: GEMCITABINE
     Indication: NON-HODGKIN^S LYMPHOMA
     Dosage: UNK
     Route: 065
     Dates: start: 20191216
  10. MOVICOL [Concomitant]
     Active Substance: POLYETHYLENE GLYCOL 3350\POTASSIUM CHLORIDE\SODIUM BICARBONATE\SODIUM CHLORIDE
     Indication: CONSTIPATION
     Dosage: UNK
     Route: 065
     Dates: start: 20191224, end: 20200210
  11. FLUDARABINE [Concomitant]
     Active Substance: FLUDARABINE PHOSPHATE
     Dosage: UNK
     Route: 065
     Dates: start: 20200129, end: 20200129
  12. CYCLOPHOSPHAMIDE. [Concomitant]
     Active Substance: CYCLOPHOSPHAMIDE
     Indication: CHEMOTHERAPY
     Dosage: UNK
     Route: 065
     Dates: start: 20200127, end: 20200127
  13. PARAFFIN, LIQUID [Concomitant]
     Active Substance: MINERAL OIL
     Indication: CONSTIPATION
     Dosage: UNK
     Route: 065
     Dates: start: 20191224, end: 20200210
  14. SULFAMETHOXAZOLE [Concomitant]
     Active Substance: SULFAMETHOXAZOLE
     Indication: INFECTION PROPHYLAXIS
     Dosage: UNK
     Route: 065
     Dates: start: 20191230, end: 20200210
  15. CYCLOPHOSPHAMIDE. [Concomitant]
     Active Substance: CYCLOPHOSPHAMIDE
     Dosage: UNK
     Route: 065
     Dates: start: 20200128, end: 20200128
  16. RANITIDINE. [Concomitant]
     Active Substance: RANITIDINE
     Indication: PROPHYLAXIS
     Dosage: UNK
     Route: 065
     Dates: start: 20200108, end: 20200109
  17. CISPLATIN. [Suspect]
     Active Substance: CISPLATIN
     Indication: NON-HODGKIN^S LYMPHOMA
     Dosage: UNK
     Route: 041
     Dates: start: 20191216
  18. ACYCLOVIR. [Concomitant]
     Active Substance: ACYCLOVIR
     Indication: PROPHYLAXIS
     Dosage: UNK
     Route: 065
     Dates: start: 20191203, end: 20200210
  19. METRONIDAZOLE. [Concomitant]
     Active Substance: METRONIDAZOLE
     Indication: INTESTINAL PSEUDO-OBSTRUCTION
     Dosage: UNK
     Route: 065
     Dates: start: 20191205, end: 20200210
  20. DEXAMETHASONE. [Suspect]
     Active Substance: DEXAMETHASONE
     Indication: NON-HODGKIN^S LYMPHOMA
     Dosage: UNK
     Route: 048
     Dates: start: 20191216
  21. FLUDARABINE [Concomitant]
     Active Substance: FLUDARABINE PHOSPHATE
     Indication: CHEMOTHERAPY
     Dosage: UNK
     Route: 065
     Dates: start: 20200127, end: 20200127
  22. CIPROFLOXACIN. [Concomitant]
     Active Substance: CIPROFLOXACIN
     Indication: INTESTINAL PSEUDO-OBSTRUCTION
     Dosage: UNK
     Route: 065
     Dates: start: 20191205, end: 20200210
  23. CETIRIZINA [Concomitant]
     Active Substance: CETIRIZINE HYDROCHLORIDE
     Indication: PROPHYLAXIS
     Dosage: UNK
     Route: 065
     Dates: start: 20200108, end: 20200109
  24. MONTELUKAST [Concomitant]
     Active Substance: MONTELUKAST SODIUM
     Indication: PROPHYLAXIS
     Dosage: UNK
     Route: 065
     Dates: start: 20200108, end: 20200109
  25. ADIRO [Concomitant]
     Active Substance: ASPIRIN
     Indication: PROPHYLAXIS
     Dosage: UNK
     Route: 065
     Dates: start: 20200108, end: 20200109

REACTIONS (1)
  - Febrile neutropenia [Recovered/Resolved]

NARRATIVE: CASE EVENT DATE: 20200120
